FAERS Safety Report 5772665-3 (Version None)
Quarter: 2008Q2

REPORT INFORMATION
  Report Type: 
  Country: None (occurrence: None)
  Receive Date: 20080613
  Receipt Date: 20080611
  Transmission Date: 20081010
  Serious: Yes (Other)
  Sender: FDA-Public Use
  Company Number: US-BOEHRINGER INGELHEIM GMBH, GERMANY-2008-BP-06775BP

PATIENT
  Age: 55 Year
  Sex: Female
  Weight: 65 kg

DRUGS (10)
  1. SPIRIVA [Suspect]
     Indication: BRONCHIECTASIS
     Route: 055
     Dates: start: 20080424, end: 20080428
  2. SPIRIVA [Suspect]
     Indication: CHRONIC OBSTRUCTIVE PULMONARY DISEASE
  3. ALBUTEROL [Concomitant]
     Dates: start: 20020101
  4. ADVAIR DISKUS 100/50 [Concomitant]
     Dates: start: 20040101
  5. CELEXA [Concomitant]
     Dates: start: 20040101
  6. SYNTHROID [Concomitant]
     Dates: start: 20030101
  7. TRAMADOL HCL [Concomitant]
     Dates: start: 20030101
  8. FLONASE [Concomitant]
     Dates: start: 20050101
  9. OMEPRAZOLE [Concomitant]
     Dates: start: 20060101
  10. METHOTREXATE [Concomitant]
     Dates: start: 20040101

REACTIONS (3)
  - BLISTER [None]
  - DERMATITIS BULLOUS [None]
  - INFARCTION [None]
